FAERS Safety Report 16032276 (Version 3)
Quarter: 2019Q1

REPORT INFORMATION
  Report Type: Spontaneous
  Country: US (occurrence: US)
  Receive Date: 20190304
  Receipt Date: 20190322
  Transmission Date: 20190418
  Serious: Yes (Other)
  Sender: FDA-Public Use
  Company Number: US-LEXICON PHARMACEUTICALS, INC-19-1606-00192

PATIENT
  Age: 72 Year
  Sex: Female

DRUGS (15)
  1. CHOLESTYRAMINE. [Concomitant]
     Active Substance: CHOLESTYRAMINE
  2. CLOPIDOGREL BISULFATE. [Concomitant]
     Active Substance: CLOPIDOGREL BISULFATE
  3. TELOTRISTAT ETHYL [Suspect]
     Active Substance: TELOTRISTAT ETHYL
     Indication: CARCINOID TUMOUR
     Route: 048
     Dates: start: 20181127
  4. PREGABALIN. [Concomitant]
     Active Substance: PREGABALIN
  5. ASPIRIN. [Concomitant]
     Active Substance: ASPIRIN
  6. CHOLECALCIFEROL [Concomitant]
     Active Substance: CHOLECALCIFEROL
  7. LEVOTHYROXIN [Concomitant]
     Active Substance: LEVOTHYROXINE
  8. PREDNISONE. [Concomitant]
     Active Substance: PREDNISONE
  9. VIAGRA [Suspect]
     Active Substance: SILDENAFIL CITRATE
  10. CETIRIZINE [Concomitant]
     Active Substance: CETIRIZINE HYDROCHLORIDE
  11. HYDROXYCHLOROQUINE [Concomitant]
     Active Substance: HYDROXYCHLOROQUINE
  12. MULTIVITAMIN [Concomitant]
     Active Substance: VITAMINS
  13. OMEPRAZOLE. [Concomitant]
     Active Substance: OMEPRAZOLE
  14. AZATHIOPRINE. [Concomitant]
     Active Substance: AZATHIOPRINE
  15. SOMATULINE [Concomitant]
     Active Substance: LANREOTIDE ACETATE

REACTIONS (4)
  - Rash [Recovered/Resolved]
  - Pulmonary hypertension [Unknown]
  - Headache [Recovered/Resolved]
  - Flushing [Not Recovered/Not Resolved]

NARRATIVE: CASE EVENT DATE: 201902
